FAERS Safety Report 7885797-0 (Version None)
Quarter: 2011Q4

REPORT INFORMATION
  Report Type: 
  Country: None (occurrence: None)
  Receive Date: 20111102
  Receipt Date: 20110627
  Transmission Date: 20120403
  Serious: No
  Sender: FDA-Public Use
  Company Number: US-AMGEN-USASP2011032949

PATIENT
  Age: 55 Year
  Sex: Female

DRUGS (1)
  1. ENBREL [Suspect]
     Indication: BEHCET'S SYNDROME
     Dosage: 25 MG, 2 TIMES/WK
     Dates: start: 20060101

REACTIONS (3)
  - PAIN [None]
  - INJECTION SITE PAIN [None]
  - PHARYNGITIS STREPTOCOCCAL [None]
